FAERS Safety Report 19603802 (Version 1)
Quarter: 2021Q3

REPORT INFORMATION
  Report Type: Spontaneous
  Country: CN (occurrence: CN)
  Receive Date: 20210724
  Receipt Date: 20210724
  Transmission Date: 20211014
  Serious: Yes (Other)
  Sender: FDA-Public Use
  Company Number: CN-LUPIN PHARMACEUTICALS INC.-2021-13150

PATIENT
  Sex: Female
  Weight: 2.38 kg

DRUGS (8)
  1. POTASSIUM CHLORIDE. [Suspect]
     Active Substance: POTASSIUM CHLORIDE
     Indication: GITELMAN^S SYNDROME
  2. POTASSIUM MAGNESIUM ASPARTATE [Suspect]
     Active Substance: MAGNESIUM ASPARTATE\POTASSIUM ASPARTATE
     Indication: MINERAL SUPPLEMENTATION
  3. POTASSIUM MAGNESIUM ASPARTATE [Suspect]
     Active Substance: MAGNESIUM ASPARTATE\POTASSIUM ASPARTATE
     Indication: HYPOKALAEMIA
  4. POTASSIUM CHLORIDE. [Suspect]
     Active Substance: POTASSIUM CHLORIDE
     Indication: HYPOKALAEMIA
     Dosage: UNK UNK, QD (SOLUTION)
     Route: 064
  5. POTASSIUM CHLORIDE. [Suspect]
     Active Substance: POTASSIUM CHLORIDE
     Indication: MINERAL SUPPLEMENTATION
  6. POTASSIUM MAGNESIUM ASPARTATE [Suspect]
     Active Substance: MAGNESIUM ASPARTATE\POTASSIUM ASPARTATE
     Indication: MINERAL SUPPLEMENTATION
  7. POTASSIUM MAGNESIUM ASPARTATE [Suspect]
     Active Substance: MAGNESIUM ASPARTATE\POTASSIUM ASPARTATE
     Indication: GITELMAN^S SYNDROME
  8. POTASSIUM MAGNESIUM ASPARTATE [Suspect]
     Active Substance: MAGNESIUM ASPARTATE\POTASSIUM ASPARTATE
     Indication: HYPOMAGNESAEMIA
     Dosage: UNK UNK, QD
     Route: 064

REACTIONS (3)
  - Low birth weight baby [Recovering/Resolving]
  - Foetal exposure during pregnancy [Unknown]
  - Premature baby [Unknown]
